FAERS Safety Report 25797010 (Version 1)
Quarter: 2025Q3

REPORT INFORMATION
  Report Type: Report from Study
  Country: CA (occurrence: CA)
  Receive Date: 20250912
  Receipt Date: 20250912
  Transmission Date: 20251020
  Serious: Yes (Hospitalization)
  Sender: LUNDBECK
  Company Number: CA-LUNDBECK-DKLU4019109

PATIENT
  Age: 63 Year
  Sex: Female

DRUGS (2)
  1. VYEPTI [Suspect]
     Active Substance: EPTINEZUMAB-JJMR
     Indication: Migraine
     Dosage: 100 MILLIGRAM
     Route: 041
     Dates: start: 20241224
  2. VYEPTI [Suspect]
     Active Substance: EPTINEZUMAB-JJMR
     Dosage: 300 MILLIGRAM
     Route: 041
     Dates: start: 20250611

REACTIONS (6)
  - Fall [Recovering/Resolving]
  - Head injury [Recovering/Resolving]
  - Rib fracture [Recovering/Resolving]
  - Pneumothorax [Recovering/Resolving]
  - Spinal fracture [Recovering/Resolving]
  - Clavicle fracture [Recovering/Resolving]

NARRATIVE: CASE EVENT DATE: 20250627
